FAERS Safety Report 5622254-6 (Version None)
Quarter: 2008Q1

REPORT INFORMATION
  Report Type: 
  Country: None (occurrence: None)
  Receive Date: 20080211
  Receipt Date: 20080129
  Transmission Date: 20080703
  Serious: Yes (Other)
  Sender: FDA-Public Use
  Company Number: JP-ROCHE-545101

PATIENT
  Age: 65 Year
  Sex: Male

DRUGS (27)
  1. ROCEPHIN [Suspect]
     Indication: MENINGITIS PNEUMOCOCCAL
     Route: 042
     Dates: start: 20070108, end: 20070112
  2. ROCEPHIN [Suspect]
     Route: 042
     Dates: start: 20070129, end: 20070201
  3. MEROPENEM TRIHYDRATE [Suspect]
     Indication: DRUG USE FOR UNKNOWN INDICATION
     Route: 065
     Dates: start: 20070112, end: 20070122
  4. VANCOMYCIN HYDROCHLORIDE [Concomitant]
     Route: 041
     Dates: start: 20070108, end: 20070122
  5. VANCOMYCIN HYDROCHLORIDE [Concomitant]
     Route: 041
     Dates: start: 20070129, end: 20070129
  6. VANCOMYCIN HYDROCHLORIDE [Concomitant]
     Route: 041
     Dates: start: 20070131, end: 20070131
  7. AMPICILLIN SODIUM [Concomitant]
     Dates: start: 20070108, end: 20070111
  8. RIFAMPICIN [Concomitant]
     Route: 048
     Dates: start: 20070108, end: 20070122
  9. ACYCLOVIR [Concomitant]
  10. GASTER [Concomitant]
     Route: 041
     Dates: start: 20070126, end: 20070201
  11. GLYCEOL [Concomitant]
     Route: 041
     Dates: start: 20070126, end: 20070126
  12. GLYCEOL [Concomitant]
     Route: 041
     Dates: start: 20070127, end: 20070129
  13. GLYCEOL [Concomitant]
     Route: 041
     Dates: start: 20070130, end: 20070130
  14. POLARAMINE [Concomitant]
     Route: 041
     Dates: start: 20070126, end: 20070127
  15. PHENOBAL [Concomitant]
     Route: 030
     Dates: start: 20070126, end: 20070130
  16. ADALAT [Concomitant]
     Route: 048
     Dates: start: 20070127, end: 20070129
  17. GASTER D [Concomitant]
     Route: 048
     Dates: start: 20070127, end: 20070129
  18. ZADITEN [Concomitant]
     Route: 048
     Dates: start: 20070127, end: 20070129
  19. BLOPRESS [Concomitant]
     Route: 048
     Dates: start: 20070127, end: 20070129
  20. MAGNESIUM HYDROXIDE TAB [Concomitant]
     Dosage: DRUG NAME REPORTED AS MILMAG (MAGNESIUM HYDROXIDE)
     Route: 048
     Dates: start: 20070127, end: 20070129
  21. PROCAINE HYDROCHLORIDE INJ [Concomitant]
     Route: 042
     Dates: start: 20070129, end: 20070129
  22. HUMACART N [Concomitant]
     Route: 058
     Dates: start: 20070130, end: 20070130
  23. HUMACART N [Concomitant]
     Route: 058
     Dates: start: 20070131, end: 20070131
  24. HUMACART N [Concomitant]
     Route: 058
     Dates: start: 20070201, end: 20070201
  25. DEPAKENE [Concomitant]
     Route: 048
     Dates: start: 20070131, end: 20070211
  26. RIMACTANE [Concomitant]
     Route: 048
     Dates: start: 20070201, end: 20070211
  27. NOVORAPID [Concomitant]
     Route: 058
     Dates: start: 20070201, end: 20070201

REACTIONS (2)
  - DRUG HYPERSENSITIVITY [None]
  - NEPHRITIS INTERSTITIAL [None]
